FAERS Safety Report 7573040-1 (Version None)
Quarter: 2011Q2

REPORT INFORMATION
  Report Type: 
  Country: None (occurrence: None)
  Receive Date: 20110627
  Receipt Date: 20110620
  Transmission Date: 20111010
  Serious: Yes (Other)
  Sender: FDA-Public Use
  Company Number: JP-ASTELLAS-2011JP004099

PATIENT
  Age: 86 Year
  Sex: Female

DRUGS (4)
  1. AMLODIPINE [Concomitant]
     Route: 065
  2. VESICARE [Suspect]
     Route: 048
  3. FAMOTIDINE [Suspect]
     Route: 048
  4. DOXAZOSIN MESYLATE [Concomitant]
     Route: 065

REACTIONS (1)
  - DEMENTIA [None]
